FAERS Safety Report 8814404 (Version 1)
Quarter: 2012Q4

REPORT INFORMATION
  Report Type: Spontaneous
  Country: IT (occurrence: None)
  Receive Date: 20120925
  Receipt Date: 20120925
  Transmission Date: 20130627
  Serious: Yes (Hospitalization, Other)
  Sender: FDA-Public Use
  Company Number: 2012/138

PATIENT
  Age: 40 Year

DRUGS (1)
  1. OLANZAPINE [Suspect]
     Indication: BIPOLAR I DISORDER
     Dates: start: 200912, end: 201001

REACTIONS (21)
  - Pyrexia [None]
  - Rhabdomyolysis [None]
  - Escherichia test positive [None]
  - Therapeutic response decreased [None]
  - Leukocytosis [None]
  - Affect lability [None]
  - Disorientation [None]
  - Anxiety [None]
  - Thrombocytosis [None]
  - Musculoskeletal stiffness [None]
  - Waxy flexibility [None]
  - Waxy flexibility [None]
  - Feeling guilty [None]
  - Persecutory delusion [None]
  - Hallucination [None]
  - Psychomotor hyperactivity [None]
  - Mutism [None]
  - Stereotypy [None]
  - Muscle rigidity [None]
  - Hyperhidrosis [None]
  - Hepatic enzyme increased [None]
